FAERS Safety Report 7898832-0 (Version None)
Quarter: 2011Q4

REPORT INFORMATION
  Report Type: 
  Country: None (occurrence: None)
  Receive Date: 20111107
  Receipt Date: 20111025
  Transmission Date: 20120403
  Serious: Yes (Hospitalization)
  Sender: FDA-Public Use
  Company Number: IT-MYLANLABS-2011S1022409

PATIENT
  Age: 51 Year
  Sex: Male

DRUGS (1)
  1. CITALOPRAM HYDROBROMIDE [Suspect]
     Route: 048
     Dates: start: 20110217, end: 20110217

REACTIONS (4)
  - INTENTIONAL OVERDOSE [None]
  - DYSPNOEA [None]
  - SOPOR [None]
  - SPEECH DISORDER [None]
